FAERS Safety Report 6405697-2 (Version None)
Quarter: 2009Q4

REPORT INFORMATION
  Report Type: 
  Country: None (occurrence: None)
  Receive Date: 20091019
  Receipt Date: 20091008
  Transmission Date: 20100525
  Serious: Yes (Hospitalization)
  Sender: FDA-Public Use
  Company Number: US-ELI_LILLY_AND_COMPANY-US200909006683

PATIENT
  Sex: Female
  Weight: 153.74 kg

DRUGS (3)
  1. OLANZAPINE + FLUOXETINE HCL [Suspect]
     Indication: MAJOR DEPRESSION
     Dosage: 1 D/F, UNK
     Dates: start: 20090826, end: 20090929
  2. OLANZAPINE + FLUOXETINE HCL [Suspect]
     Dosage: 1 D/F, UNK
     Dates: start: 20090930
  3. SYNTHROID [Concomitant]
     Indication: HYPOTHYROIDISM
     Dosage: UNK, UNK
     Dates: start: 20041201

REACTIONS (1)
  - SUICIDAL IDEATION [None]
